FAERS Safety Report 4491075-2 (Version None)
Quarter: 2004Q4

REPORT INFORMATION
  Report Type: 
  Country: None (occurrence: None)
  Receive Date: 20041102
  Receipt Date: 20041026
  Transmission Date: 20050328
  Serious: Yes (Disabling, Other)
  Sender: FDA-Public Use
  Company Number: US-MERCK-0410USA03966

PATIENT
  Age: 64 Year
  Sex: Female

DRUGS (5)
  1. VIOXX [Suspect]
     Indication: PAIN
     Route: 048
     Dates: start: 20040101
  2. VIOXX [Suspect]
     Indication: ARTHRITIS
     Route: 048
     Dates: start: 20040101
  3. VITAMINS (UNSPECIFIED) [Concomitant]
     Route: 065
  4. MACROBID [Concomitant]
     Route: 065
  5. MAXZIDE [Concomitant]
     Route: 065

REACTIONS (4)
  - CONNECTIVE TISSUE DISORDER [None]
  - EYE SWELLING [None]
  - OROPHARYNGEAL SWELLING [None]
  - VASCULITIS [None]
